FAERS Safety Report 14735161 (Version 2)
Quarter: 2018Q2

REPORT INFORMATION
  Report Type: Report from Study
  Country: DE (occurrence: DE)
  Receive Date: 20180409
  Receipt Date: 20180411
  Transmission Date: 20180711
  Serious: Yes (Death, Hospitalization)
  Sender: FDA-Public Use
  Company Number: DE-PFIZER INC-2018140434

PATIENT
  Age: 63 Year
  Sex: Female
  Weight: 60 kg

DRUGS (2)
  1. VARGATEF [Suspect]
     Active Substance: NINTEDANIB
     Indication: NON-SMALL CELL LUNG CANCER
     Dosage: 400 MG, 1X/DAY
     Route: 048
     Dates: start: 20170404, end: 20170620
  2. DOCETAXEL. [Suspect]
     Active Substance: DOCETAXEL
     Indication: NON-SMALL CELL LUNG CANCER
     Dosage: 75 MG/M2 BODY SURFACE AREA
     Route: 042
     Dates: start: 20170531, end: 20170531

REACTIONS (8)
  - General physical health deterioration [Unknown]
  - Diarrhoea [Unknown]
  - Back pain [Unknown]
  - Lumbar vertebral fracture [Unknown]
  - Hypokalaemia [Unknown]
  - Neoplasm progression [Fatal]
  - Nausea [Unknown]
  - Decreased appetite [Unknown]

NARRATIVE: CASE EVENT DATE: 20170618
